FAERS Safety Report 5542381-1 (Version None)
Quarter: 2007Q4

REPORT INFORMATION
  Report Type: 
  Country: None (occurrence: None)
  Receive Date: 20071210
  Receipt Date: 20061213
  Transmission Date: 20080405
  Serious: No
  Sender: FDA-Public Use
  Company Number: US-AMGEN-KDL200983

PATIENT
  Sex: Male
  Weight: 68.1 kg

DRUGS (6)
  1. ENBREL [Suspect]
     Indication: RHEUMATOID ARTHRITIS
     Route: 058
     Dates: start: 20060706
  2. PLAQUENIL [Concomitant]
     Dates: start: 19930101
  3. IMURAN [Concomitant]
     Dates: start: 19930101
  4. METHOTREXATE [Concomitant]
     Dates: start: 19930101
  5. CELEBREX [Concomitant]
     Dates: start: 20040101
  6. BONIVA [Concomitant]
     Dates: start: 20060101

REACTIONS (3)
  - CELLULITIS [None]
  - DEVICE DISLOCATION [None]
  - LOCALISED INFECTION [None]
